FAERS Safety Report 13511417 (Version 5)
Quarter: 2017Q4

REPORT INFORMATION
  Report Type: Report from Study
  Country: BR (occurrence: BR)
  Receive Date: 20170504
  Receipt Date: 20171130
  Transmission Date: 20180320
  Serious: Yes (Other)
  Sender: FDA-Public Use
  Company Number: PHHY2017BR064680

PATIENT
  Age: 59 Year
  Sex: Female
  Weight: 50 kg

DRUGS (7)
  1. TRAVATAN [Suspect]
     Active Substance: TRAVOPROST
     Indication: GLAUCOMA
  2. ACLASTA [Suspect]
     Active Substance: ZOLEDRONIC ACID
     Dosage: 1 DF, Q12MO
     Route: 042
     Dates: start: 20170529
  3. CALCIUM [Concomitant]
     Active Substance: CALCIUM
     Indication: PRODUCT USED FOR UNKNOWN INDICATION
     Dosage: 511 MG, UNK
     Route: 065
  4. FLEBON [Concomitant]
     Indication: PAIN IN EXTREMITY
     Dosage: 50 MG, UNK
     Route: 048
  5. ACLASTA [Suspect]
     Active Substance: ZOLEDRONIC ACID
     Indication: OSTEOPENIA
     Dosage: 1 DF, Q12MO
     Route: 042
     Dates: start: 20141010
  6. TRAVATAN [Suspect]
     Active Substance: TRAVOPROST
     Indication: INTRAOCULAR PRESSURE TEST ABNORMAL
     Dosage: 1 DRP, (BEFORE GOING TO BED)
     Route: 065
  7. ACLASTA [Suspect]
     Active Substance: ZOLEDRONIC ACID
     Indication: OSTEOPOROSIS
     Dosage: 1 DF, Q12MO
     Route: 042
     Dates: start: 201010

REACTIONS (33)
  - Eye haemorrhage [Unknown]
  - Pyrexia [Recovered/Resolved]
  - Gastric disorder [Unknown]
  - Peripheral swelling [Unknown]
  - Musculoskeletal pain [Unknown]
  - Muscle spasms [Unknown]
  - Pain [Recovered/Resolved]
  - Limb injury [Unknown]
  - Pain [Not Recovered/Not Resolved]
  - Bone pain [Unknown]
  - Pain in extremity [Unknown]
  - Tremor [Unknown]
  - Pyrexia [Unknown]
  - Fall [Unknown]
  - Flatulence [Unknown]
  - Intraocular pressure test abnormal [Unknown]
  - Weight decreased [Unknown]
  - Hallucination [Unknown]
  - Tendonitis [Unknown]
  - Cardiovascular disorder [Unknown]
  - Nasopharyngitis [Unknown]
  - Eye pain [Unknown]
  - Malaise [Unknown]
  - Asthenia [Unknown]
  - Bone erosion [Unknown]
  - Anaemia [Unknown]
  - Blood pressure decreased [Unknown]
  - Vision blurred [Unknown]
  - Insomnia [Unknown]
  - Depression [Unknown]
  - Osteopenia [Unknown]
  - Condition aggravated [Unknown]
  - Osteoporosis [Not Recovered/Not Resolved]

NARRATIVE: CASE EVENT DATE: 201611
